FAERS Safety Report 15322938 (Version 1)
Quarter: 2018Q3

REPORT INFORMATION
  Report Type: Spontaneous
  Country: GB (occurrence: GB)
  Receive Date: 20180827
  Receipt Date: 20180827
  Transmission Date: 20181010
  Serious: Yes (Other)
  Sender: FDA-Public Use
  Company Number: GB-PERRIGO-18GB008438

PATIENT
  Age: 37 Year
  Sex: Female
  Weight: 85.27 kg

DRUGS (2)
  1. IBUPROFEN. [Concomitant]
     Active Substance: IBUPROFEN
     Indication: PRODUCT USED FOR UNKNOWN INDICATION
  2. LORATADINE. [Suspect]
     Active Substance: LORATADINE
     Indication: RASH PRURITIC
     Dosage: 10 MG, QD
     Route: 048
     Dates: start: 20180810, end: 20180812

REACTIONS (2)
  - Arthralgia [Recovered/Resolved]
  - Joint swelling [Recovered/Resolved]

NARRATIVE: CASE EVENT DATE: 20180810
